FAERS Safety Report 25817090 (Version 1)
Quarter: 2025Q3

REPORT INFORMATION
  Report Type: Spontaneous
  Country: US (occurrence: US)
  Receive Date: 20250918
  Receipt Date: 20250918
  Transmission Date: 20251021
  Serious: No
  Sender: CIPLA
  Company Number: US-CIPLA LTD.-2025US11633

PATIENT

DRUGS (3)
  1. ALBUTEROL [Suspect]
     Active Substance: ALBUTEROL
     Indication: Product used for unknown indication
     Dosage: 180 MICROGRAM, BID (2 PUFFS IN MORNING AND 2 PUFFS IN THE EVENING (TWICE AT NIGHT AND TWICE IN THE M
     Route: 065
  2. ALBUTEROL [Suspect]
     Active Substance: ALBUTEROL
     Dosage: 180 MICROGRAM, BID (2 PUFFS IN MORNING AND 2 PUFFS IN THE EVENING (TWICE AT NIGHT AND TWICE IN THE M
     Route: 065
  3. ALBUTEROL [Suspect]
     Active Substance: ALBUTEROL
     Dosage: 180 MICROGRAM, BID (2 PUFFS IN MORNING AND 2 PUFFS IN THE EVENING (TWICE AT NIGHT AND TWICE IN THE M
     Route: 065
     Dates: start: 20250902

REACTIONS (4)
  - Incorrect dose administered by device [Unknown]
  - Device delivery system issue [Unknown]
  - Device mechanical issue [Unknown]
  - Device issue [Unknown]

NARRATIVE: CASE EVENT DATE: 20250902
